FAERS Safety Report 20659640 (Version 1)
Quarter: 2022Q1

REPORT INFORMATION
  Report Type: Spontaneous
  Country: US (occurrence: US)
  Receive Date: 20220331
  Receipt Date: 20220331
  Transmission Date: 20220423
  Serious: No
  Sender: FDA-Public Use
  Company Number: US-PFIZER INC-2021858597

PATIENT
  Age: 56 Year
  Sex: Female

DRUGS (1)
  1. IBRANCE [Suspect]
     Active Substance: PALBOCICLIB
     Indication: Breast cancer
     Dosage: 125 MG, CYCLIC (BY MOUTH ONCE DAILY FOR 21 DAYS)
     Route: 048
     Dates: start: 20210517

REACTIONS (3)
  - Weight increased [Unknown]
  - Stomatitis [Unknown]
  - Fatigue [Unknown]
